FAERS Safety Report 6433852-4 (Version None)
Quarter: 2009Q4

REPORT INFORMATION
  Report Type: 
  Country: None (occurrence: None)
  Receive Date: 20091106
  Receipt Date: 20091106
  Transmission Date: 20100525
  Serious: Yes (Hospitalization)
  Sender: FDA-Public Use
  Company Number: None

PATIENT
  Age: 66 Year
  Sex: Male
  Weight: 91.76 kg

DRUGS (2)
  1. WARFARIN SODIUM [Suspect]
     Indication: CARDIOVASCULAR DISORDER
     Dosage: 5 MG OTHER PO
     Route: 048
     Dates: start: 20090805
  2. WARFARIN SODIUM [Suspect]
     Indication: SURGERY
     Dosage: 5 MG OTHER PO
     Route: 048
     Dates: start: 20090805

REACTIONS (4)
  - CONDITION AGGRAVATED [None]
  - DEVICE INEFFECTIVE [None]
  - EPISTAXIS [None]
  - INTERNATIONAL NORMALISED RATIO ABNORMAL [None]
